FAERS Safety Report 22005598 (Version 1)
Quarter: 2023Q1

REPORT INFORMATION
  Report Type: Spontaneous
  Country: US (occurrence: None)
  Receive Date: 20230216
  Receipt Date: 20230216
  Transmission Date: 20230417
  Serious: No
  Sender: FDA-Public Use
  Company Number: None

PATIENT
  Age: 47 Year
  Sex: Female
  Weight: 106.2 kg

DRUGS (1)
  1. MOUNJARO [Suspect]
     Active Substance: TIRZEPATIDE
     Indication: Product used for unknown indication
     Dosage: OTHER QUANTITY : 1 INJECTION(S);?OTHER FREQUENCY : 1X PER WEEK;?OTHER ROUTE : SUBCUTANEOUS INJECTION
     Route: 050
     Dates: start: 20230129

REACTIONS (8)
  - Insomnia [None]
  - Fatigue [None]
  - Middle insomnia [None]
  - Physical disability [None]
  - Gait disturbance [None]
  - Cardiac disorder [None]
  - Product label issue [None]
  - Initial insomnia [None]

NARRATIVE: CASE EVENT DATE: 20230212
